FAERS Safety Report 20210907 (Version 3)
Quarter: 2022Q1

REPORT INFORMATION
  Report Type: Spontaneous
  Country: US (occurrence: US)
  Receive Date: 20211221
  Receipt Date: 20220301
  Transmission Date: 20220423
  Serious: Yes (Hospitalization)
  Sender: FDA-Public Use
  Company Number: US-PFIZER INC-202101760916

PATIENT
  Age: 74 Year
  Sex: Female
  Weight: 66.68 kg

DRUGS (2)
  1. RETACRIT [Suspect]
     Active Substance: EPOETIN ALFA-EPBX
     Indication: Anaemia
     Dosage: UNK (10000 UNITS/ML EVERY 2 WEEK)
  2. ELIQUIS [Concomitant]
     Active Substance: APIXABAN
     Dosage: UNK

REACTIONS (4)
  - Asthenia [Recovered/Resolved]
  - Anaemia [Recovered/Resolved]
  - Visual impairment [Unknown]
  - Dyspnoea [Unknown]

NARRATIVE: CASE EVENT DATE: 20120101
